FAERS Safety Report 17942688 (Version 3)
Quarter: 2022Q4

REPORT INFORMATION
  Report Type: Report from Study
  Country: JP (occurrence: JP)
  Receive Date: 20200625
  Receipt Date: 20221123
  Transmission Date: 20230112
  Serious: Yes (Death, Life-Threatening, Hospitalization, Other)
  Sender: FDA-Public Use
  Company Number: JP-AUROBINDO-AUR-APL-2020-030736

PATIENT
  Age: 79 Year
  Sex: Male

DRUGS (2)
  1. FOLOTYN [Suspect]
     Active Substance: PRALATREXATE
     Indication: Angiocentric lymphoma
     Dosage: 1 DOSAGE FORM (JUST ONE DOSE)
     Route: 042
     Dates: start: 20200603, end: 20200603
  2. VITAMIN B12 [Concomitant]
     Active Substance: CYANOCOBALAMIN
     Indication: Product used for unknown indication
     Dosage: UNK
     Route: 065
     Dates: start: 20200601

REACTIONS (4)
  - Infection [Fatal]
  - Myelosuppression [Not Recovered/Not Resolved]
  - Neutrophil count decreased [Unknown]
  - Stomatitis [Not Recovered/Not Resolved]

NARRATIVE: CASE EVENT DATE: 20200608
